FAERS Safety Report 7503897-1 (Version None)
Quarter: 2011Q2

REPORT INFORMATION
  Report Type: 
  Country: None (occurrence: None)
  Receive Date: 20110401
  Receipt Date: 20101112
  Transmission Date: 20111010
  Serious: Yes (Other)
  Sender: FDA-Public Use
  Company Number: 248918USA

PATIENT
  Age: 69 Year
  Sex: Female

DRUGS (7)
  1. ALBUTEROL [Concomitant]
  2. AXOTAL [Concomitant]
  3. FLUOXETINE HYDROCHLORIDE [Concomitant]
  4. SERETIDE [Concomitant]
  5. WARFARIN SODIUM [Concomitant]
  6. TAMOXIFEN CITRATE [Suspect]
     Indication: BREAST CANCER
     Dosage: ORAL
     Route: 048
     Dates: start: 20070101, end: 20100909
  7. FLUTICASONE PROPIONATE [Concomitant]

REACTIONS (1)
  - DEEP VEIN THROMBOSIS [None]
